FAERS Safety Report 5209567-7 (Version None)
Quarter: 2006Q4

REPORT INFORMATION
  Report Type: 
  Country: None (occurrence: None)
  Receive Date: 20061124
  Receipt Date: 20060713
  Transmission Date: 20070319
  Serious: Yes (Hospitalization)
  Sender: FDA-Public Use
  Company Number: 2006-BP-07266BP

PATIENT
  Age: 68 Year
  Sex: Female
  Weight: 61.65 kg

DRUGS (1)
  1. AGGRENOX [Suspect]
     Dosage: SEE TEXT (SEE TEXT, 25 MG/200MG), PO
     Route: 048

REACTIONS (1)
  - HAEMORRHAGE INTRACRANIAL [None]
